FAERS Safety Report 8836682 (Version 1)
Quarter: 2012Q4

REPORT INFORMATION
  Report Type: Spontaneous
  Country: IT (occurrence: None)
  Receive Date: 20121010
  Receipt Date: 20121010
  Transmission Date: 20130627
  Serious: No
  Sender: FDA-Public Use
  Company Number: 2012AP003176

PATIENT
  Age: 44 Year
  Sex: Female

DRUGS (1)
  1. ZOLPIDEM TARTRATE [Suspect]
     Indication: INSOMNIA
     Route: 048
     Dates: start: 20120201, end: 20120221

REACTIONS (1)
  - Retrograde amnesia [None]
